FAERS Safety Report 13820999 (Version 1)
Quarter: 2017Q3

REPORT INFORMATION
  Report Type: Spontaneous
  Country: US (occurrence: US)
  Receive Date: 20170801
  Receipt Date: 20170801
  Transmission Date: 20171127
  Serious: Yes (Life-Threatening, Hospitalization, Other)
  Sender: FDA-Public Use
  Company Number: US-MYLANLABS-2017M1046623

PATIENT

DRUGS (1)
  1. LOPERAMIDE [Suspect]
     Active Substance: LOPERAMIDE
     Indication: DRUG USE DISORDER
     Dosage: MASSIVE DOSES OF APPROXIMATELY 150-200 TABLETS OF 2MG STRENGTH (3 INSTANCES)
     Route: 065

REACTIONS (12)
  - Dyspnoea exertional [Recovering/Resolving]
  - Drug abuse [Recovering/Resolving]
  - Ventricular tachycardia [Recovered/Resolved]
  - Electrocardiogram QT prolonged [Recovered/Resolved]
  - Electrocardiogram QRS complex prolonged [Recovered/Resolved]
  - Electrocardiogram P wave abnormal [Recovered/Resolved]
  - Ejection fraction decreased [Recovering/Resolving]
  - Pain [Unknown]
  - Oedema peripheral [Unknown]
  - Congestive cardiomyopathy [Recovering/Resolving]
  - Overdose [Recovering/Resolving]
  - Asthenia [Unknown]
